FAERS Safety Report 11939445 (Version 2)
Quarter: 2016Q1

REPORT INFORMATION
  Report Type: Spontaneous
  Country: NZ (occurrence: NZ)
  Receive Date: 20160122
  Receipt Date: 20160316
  Transmission Date: 20160526
  Serious: Yes (Hospitalization)
  Sender: FDA-Public Use
  Company Number: NZ-ELI_LILLY_AND_COMPANY-NZ201601007163

PATIENT
  Age: 68 Year
  Sex: Female

DRUGS (9)
  1. LITHIUM. [Concomitant]
     Active Substance: LITHIUM
     Dosage: 400 MG, UNKNOWN
     Route: 065
  2. BENZTROPINE [Concomitant]
     Active Substance: BENZTROPINE
     Dosage: 2 MG, UNKNOWN
     Route: 065
  3. ASPIRIN                            /00002701/ [Concomitant]
     Active Substance: ASPIRIN
     Dosage: 100 MG, QOD
     Route: 065
  4. LAMOTRIGINE. [Concomitant]
     Active Substance: LAMOTRIGINE
     Dosage: 125 MG, BID
     Route: 065
  5. METOPROLOL. [Concomitant]
     Active Substance: METOPROLOL
     Dosage: 23.75 MG, UNKNOWN (HALVED THE DOSE AFTER THE EVENT)
     Route: 065
  6. PANTOPRAZOLE [Concomitant]
     Active Substance: PANTOPRAZOLE SODIUM
     Dosage: 20 MG, UNKNOWN
     Route: 065
  7. SIMVASTATIN. [Concomitant]
     Active Substance: SIMVASTATIN
     Dosage: 40 MG, UNKNOWN
     Route: 065
  8. LAXOL                              /00047901/ [Concomitant]
     Dosage: 1 DF, UNKNOWN
     Route: 065
  9. ZYPREXA RELPREVV [Suspect]
     Active Substance: OLANZAPINE PAMOATE
     Indication: PRODUCT USED FOR UNKNOWN INDICATION
     Dosage: 210 MG, OTHER: EVERY TWO WEEKS
     Route: 065

REACTIONS (7)
  - Hypotension [Unknown]
  - Hyperhidrosis [Unknown]
  - Somnolence [Unknown]
  - Psychiatric decompensation [Unknown]
  - Fatigue [Unknown]
  - Confusional state [Unknown]
  - Bradycardia [Unknown]

NARRATIVE: CASE EVENT DATE: 20151224
